FAERS Safety Report 8799566 (Version 1)
Quarter: 2012Q4

REPORT INFORMATION
  Report Type: Spontaneous
  Country: IT (occurrence: None)
  Receive Date: 20120914
  Receipt Date: 20120914
  Transmission Date: 20130627
  Serious: Yes (Hospitalization)
  Sender: FDA-Public Use
  Company Number: GER/ITL/12/0025793

PATIENT
  Age: 69 Year
  Sex: Male

DRUGS (5)
  1. CARVEDILOL [Suspect]
     Dates: start: 20110101, end: 20120821
  2. ENALAPRIL MALEATE [Suspect]
     Dosage: 12.5 mg, 1 D, Oral
     Route: 048
     Dates: start: 20110101, end: 20120101
  3. ZYLORIC [Concomitant]
  4. CARDIOASPIRIN (ACETYLSALICYLIC ACID) [Concomitant]
  5. SIVASTIN (SIMVASTATIN) [Concomitant]

REACTIONS (2)
  - Hyperkalaemia [None]
  - Blood creatinine increased [None]
